FAERS Safety Report 11649199 (Version 2)
Quarter: 2015Q4

REPORT INFORMATION
  Report Type: Spontaneous
  Country: JP (occurrence: JP)
  Receive Date: 20151021
  Receipt Date: 20151109
  Transmission Date: 20160304
  Serious: No
  Sender: FDA-Public Use
  Company Number: JP-PFIZER INC-2015305889

PATIENT
  Age: 71 Year
  Sex: Male

DRUGS (2)
  1. CELECOX [Suspect]
     Active Substance: CELECOXIB
     Indication: SPONDYLOLISTHESIS
     Dosage: 100 MG, 2X/DAY
     Route: 048
     Dates: start: 20150625, end: 20150918
  2. LYRICA [Concomitant]
     Active Substance: PREGABALIN
     Indication: SPONDYLOLISTHESIS
     Dosage: 50 MG, 2X/DAY
     Route: 048
     Dates: start: 20150625, end: 20150918

REACTIONS (1)
  - No adverse event [Unknown]
